FAERS Safety Report 9893876 (Version 4)
Quarter: 2015Q1

REPORT INFORMATION
  Report Type: Spontaneous
  Country: US (occurrence: US)
  Receive Date: 20140213
  Receipt Date: 20150217
  Transmission Date: 20150721
  Serious: Yes (Other)
  Sender: FDA-Public Use
  Company Number: US-SA-2014SA017722

PATIENT
  Age: 69 Year
  Sex: Female
  Weight: 127 kg

DRUGS (34)
  1. LANTUS SOLOSTAR [Suspect]
     Active Substance: INSULIN GLARGINE
     Indication: TYPE 2 DIABETES MELLITUS
     Route: 051
     Dates: start: 20110523
  2. MUPIROCIN. [Concomitant]
     Active Substance: MUPIROCIN
     Dosage: SMALL AMOUNT
  3. OMEPRAZOLE. [Concomitant]
     Active Substance: OMEPRAZOLE
     Dosage: 20 MG
  4. TERCONAZOLE. [Concomitant]
     Active Substance: TERCONAZOLE
     Dosage: VAGINAL CREAM?4%
  5. VENTOLIN HFA [Concomitant]
     Active Substance: ALBUTEROL SULFATE
     Dosage: INHALE 1 PUFF EVERY 4 HOURS
  6. XARELTO [Concomitant]
     Active Substance: RIVAROXABAN
     Dosage: 20 MG
  7. LANTUS SOLOSTAR [Suspect]
     Active Substance: INSULIN GLARGINE
     Indication: TYPE 2 DIABETES MELLITUS
     Route: 051
     Dates: start: 20110523
  8. SOLOSTAR [Concomitant]
     Active Substance: DEVICE
     Dosage: 100 - 37 UNITS A DAY?100 UNITS - 46 UNITS IN MORNING
  9. VITAMIN D [Concomitant]
     Active Substance: CHOLECALCIFEROL
     Dosage: 1000 UNITS
  10. LANTUS SOLOSTAR [Suspect]
     Active Substance: INSULIN GLARGINE
     Indication: TYPE 2 DIABETES MELLITUS
     Dosage: DOSE:46 UNIT(S)
     Route: 065
  11. LASIX [Concomitant]
     Active Substance: FUROSEMIDE
  12. ZOLOFT [Concomitant]
     Active Substance: SERTRALINE HYDROCHLORIDE
     Dosage: 25 TO 75 MG DAILY
  13. CLARITIN [Concomitant]
     Active Substance: LORATADINE
     Dosage: 10 MG
  14. FUROSEMIDE. [Concomitant]
     Active Substance: FUROSEMIDE
     Dosage: 40 MG?2 TABLETS MORNING AND LUNCH
  15. OXYGEN. [Concomitant]
     Active Substance: OXYGEN
  16. AMLODIPINE BESILATE [Concomitant]
     Active Substance: AMLODIPINE BESYLATE
  17. BIOTENE [Concomitant]
     Active Substance: SODIUM MONOFLUOROPHOSPHATE
  18. NEURONTIN [Concomitant]
     Active Substance: GABAPENTIN
  19. LANTUS SOLOSTAR [Suspect]
     Active Substance: INSULIN GLARGINE
     Indication: TYPE 2 DIABETES MELLITUS
     Route: 051
     Dates: start: 20110523
  20. LANTUS SOLOSTAR [Suspect]
     Active Substance: INSULIN GLARGINE
     Indication: TYPE 2 DIABETES MELLITUS
     Dosage: DOSE:46 UNIT(S)
     Route: 065
  21. FERROUS SULFATE [Concomitant]
     Active Substance: FERROUS SULFATE\FERROUS SULFATE, DRIED
     Dosage: 325 MG
  22. HYDROCODONE [Concomitant]
     Active Substance: HYDROCODONE
     Dosage: 325 MG
  23. MONTELUKAST SODIUM. [Concomitant]
     Active Substance: MONTELUKAST SODIUM
     Dosage: 1 X DAY; 3 X DAY
  24. SERTRALINE [Concomitant]
     Active Substance: SERTRALINE HYDROCHLORIDE
     Dosage: 50 MG 1 X DAY AT BEDTIME
  25. CALCIUM [Concomitant]
     Active Substance: CALCIUM
     Dosage: 600 MG
  26. LANTUS SOLOSTAR [Suspect]
     Active Substance: INSULIN GLARGINE
     Indication: TYPE 2 DIABETES MELLITUS
     Dosage: DOSE:25 UNIT(S)
     Route: 051
  27. LANTUS SOLOSTAR [Suspect]
     Active Substance: INSULIN GLARGINE
     Indication: TYPE 2 DIABETES MELLITUS
     Dosage: DOSE:25 UNIT(S)
     Route: 051
  28. SERTRALINE [Concomitant]
     Active Substance: SERTRALINE HYDROCHLORIDE
     Dosage: 25 MG
  29. TRAZODONE HYDROCHLORIDE. [Concomitant]
     Active Substance: TRAZODONE HYDROCHLORIDE
     Dosage: 50 MG; 1/2 TABLET AT BEDTIME
  30. METOPROLOL TARTRATE. [Concomitant]
     Active Substance: METOPROLOL TARTRATE
     Dosage: 25 MG; 1/2 TABLET X 2 DAY
  31. NOVOLIN [Concomitant]
     Active Substance: INSULIN HUMAN
     Dosage: AS DIRECTED DOSE:100 UNIT(S)
  32. POTASSIUM CHLORIDE. [Concomitant]
     Active Substance: POTASSIUM CHLORIDE
  33. VITAMIN C [Concomitant]
     Active Substance: ASCORBIC ACID
     Dosage: 500 MG
  34. DESYREL [Concomitant]
     Active Substance: TRAZODONE HYDROCHLORIDE
     Dosage: 50 MG?1/2 TABLET AT BEDTIME

REACTIONS (4)
  - Device malfunction [None]
  - Blindness unilateral [Unknown]
  - Incorrect dose administered by device [None]
  - Visual acuity reduced [Unknown]
